FAERS Safety Report 9993656 (Version 1)
Quarter: 2014Q1

REPORT INFORMATION
  Report Type: Spontaneous
  Country: SE (occurrence: SE)
  Receive Date: 20140310
  Receipt Date: 20140310
  Transmission Date: 20141002
  Serious: Yes (Other)
  Sender: FDA-Public Use
  Company Number: SE-ACTAVIS-2014-04148

PATIENT
  Sex: Female

DRUGS (1)
  1. FENTANYL (UNKNOWN) [Suspect]
     Indication: PRODUCT USED FOR UNKNOWN INDICATION
     Dosage: 25 MCG PER HOUR
     Route: 062

REACTIONS (3)
  - Intentional drug misuse [Unknown]
  - Overdose [Unknown]
  - Inappropriate schedule of drug administration [Unknown]
